FAERS Safety Report 26079530 (Version 1)
Quarter: 2025Q4

REPORT INFORMATION
  Report Type: Spontaneous
  Country: EU (occurrence: EU)
  Receive Date: 20251123
  Receipt Date: 20251123
  Transmission Date: 20260117
  Serious: Yes (Other)
  Sender: ASTELLAS
  Company Number: EU-ASTELLAS-2025-AER-063615

PATIENT
  Age: 73 Year
  Sex: Male

DRUGS (11)
  1. XOSPATA [Suspect]
     Active Substance: GILTERITINIB
     Indication: Acute myeloid leukaemia
     Route: 065
     Dates: start: 202306, end: 2024
  2. XOSPATA [Suspect]
     Active Substance: GILTERITINIB
     Indication: NPM1 gene mutation
     Dosage: DOSAGE REDUCTION
     Route: 065
     Dates: start: 202412
  3. XOSPATA [Suspect]
     Active Substance: GILTERITINIB
     Route: 065
     Dates: start: 202501, end: 2025
  4. XOSPATA [Suspect]
     Active Substance: GILTERITINIB
     Route: 065
     Dates: start: 202507
  5. AZACITIDINE [Concomitant]
     Active Substance: AZACITIDINE
     Indication: Acute myeloid leukaemia
     Route: 065
     Dates: start: 202304
  6. AZACITIDINE [Concomitant]
     Active Substance: AZACITIDINE
     Indication: NPM1 gene mutation
  7. HYDROXYUREA [Concomitant]
     Active Substance: HYDROXYUREA
     Indication: Acute myeloid leukaemia
     Route: 065
  8. ALLOPURINOL [Concomitant]
     Active Substance: ALLOPURINOL
     Indication: Acute myeloid leukaemia
     Route: 065
  9. METHYLPREDNISOLONE [Concomitant]
     Active Substance: METHYLPREDNISOLONE
     Indication: Acute myeloid leukaemia
     Route: 065
  10. VENETOCLAX [Concomitant]
     Active Substance: VENETOCLAX
     Indication: Acute myeloid leukaemia
     Route: 065
     Dates: start: 202304
  11. VENETOCLAX [Concomitant]
     Active Substance: VENETOCLAX
     Indication: NPM1 gene mutation

REACTIONS (5)
  - Blood creatine phosphokinase abnormal [Unknown]
  - Cough [Unknown]
  - Pyrexia [Unknown]
  - Amylase increased [Recovering/Resolving]
  - Lipase increased [Recovering/Resolving]

NARRATIVE: CASE EVENT DATE: 20231101
